FAERS Safety Report 8509079-9 (Version None)
Quarter: 2012Q3

REPORT INFORMATION
  Report Type: 
  Country: None (occurrence: None)
  Receive Date: 20120713
  Receipt Date: 20120710
  Transmission Date: 20120928
  Serious: Yes (Life-Threatening, Hospitalization)
  Sender: FDA-Public Use
  Company Number: DE-B.I. PHARMACEUTICALS,INC./RIDGEFIELD-2012-DE-00741DE

PATIENT
  Sex: Male

DRUGS (5)
  1. PRADAXA [Suspect]
     Indication: CEREBROVASCULAR ACCIDENT PROPHYLAXIS
     Route: 048
  2. BISO [Concomitant]
     Dosage: 5 MG
  3. PRADAXA [Suspect]
     Dosage: 450 MG
  4. ATORVASTATIN CALCIUM [Concomitant]
     Dosage: 1 ANZ
  5. PANTOPRAZOLE [Concomitant]
     Dosage: 1 ANZ

REACTIONS (7)
  - HAEMOGLOBIN DECREASED [None]
  - COLONIC POLYP [None]
  - HAEMATOCHEZIA [None]
  - GASTROINTESTINAL HAEMORRHAGE [None]
  - ANGIODYSPLASIA [None]
  - GASTRIC DYSPLASIA [None]
  - HAEMORRHOIDS [None]
